FAERS Safety Report 14411310 (Version 3)
Quarter: 2018Q1

REPORT INFORMATION
  Report Type: Spontaneous
  Country: US (occurrence: US)
  Receive Date: 20180119
  Receipt Date: 20180330
  Transmission Date: 20180509
  Serious: Yes (Other)
  Sender: FDA-Public Use
  Company Number: US-ASTELLAS-2018US002839

PATIENT
  Age: 81 Year
  Sex: Female

DRUGS (2)
  1. MYRBETRIQ [Suspect]
     Active Substance: MIRABEGRON
     Indication: URINARY INCONTINENCE
     Route: 065
  2. MYRBETRIQ [Suspect]
     Active Substance: MIRABEGRON
     Indication: MICTURITION URGENCY
     Route: 065

REACTIONS (5)
  - Drug ineffective [Unknown]
  - Cough [Recovered/Resolved]
  - Heart valve incompetence [Unknown]
  - Urinary incontinence [Unknown]
  - Nasopharyngitis [Recovered/Resolved]
